FAERS Safety Report 6260500-9 (Version None)
Quarter: 2009Q3

REPORT INFORMATION
  Report Type: 
  Country: None (occurrence: None)
  Receive Date: 20090706
  Receipt Date: 20090622
  Transmission Date: 20100115
  Serious: Yes (Other)
  Sender: FDA-Public Use
  Company Number: 2009AP002517

PATIENT
  Age: 22 Year
  Sex: Male

DRUGS (1)
  1. RANITIDINE HYDROCHLORIDE [Suspect]
     Dosage: PO
     Route: 048
     Dates: start: 20090508, end: 20090525

REACTIONS (2)
  - OBSTRUCTIVE AIRWAYS DISORDER [None]
  - OROPHARYNGEAL SWELLING [None]
